FAERS Safety Report 5752227-4 (Version None)
Quarter: 2008Q2

REPORT INFORMATION
  Report Type: 
  Country: None (occurrence: None)
  Receive Date: 20080529
  Receipt Date: 20080519
  Transmission Date: 20081010
  Serious: Yes (Life-Threatening, Hospitalization)
  Sender: FDA-Public Use
  Company Number: FR-JNJFOC-20080405625

PATIENT
  Age: 63 Year
  Sex: Male

DRUGS (15)
  1. OFLOCET [Suspect]
     Indication: DRUG USE FOR UNKNOWN INDICATION
     Route: 048
  2. TRIATEC [Suspect]
     Indication: DRUG USE FOR UNKNOWN INDICATION
     Route: 048
  3. LASILIX [Suspect]
     Indication: DRUG USE FOR UNKNOWN INDICATION
     Route: 048
  4. FUROSEMIDE RENAUDIN [Suspect]
     Indication: DRUG USE FOR UNKNOWN INDICATION
     Route: 042
  5. ESIDRIX [Suspect]
     Indication: DRUG USE FOR UNKNOWN INDICATION
     Route: 048
  6. ZOCOR [Suspect]
     Indication: DRUG USE FOR UNKNOWN INDICATION
     Route: 048
  7. NEO-MERCAZOLE TAB [Suspect]
     Indication: DRUG USE FOR UNKNOWN INDICATION
     Route: 048
  8. XATRAL [Suspect]
     Indication: DRUG USE FOR UNKNOWN INDICATION
     Route: 048
  9. DIFFUK [Suspect]
     Indication: DRUG USE FOR UNKNOWN INDICATION
     Route: 048
  10. IPRATROPIUM BROMIDE [Suspect]
     Indication: DRUG USE FOR UNKNOWN INDICATION
     Route: 055
  11. ALDACTONE [Suspect]
     Indication: DRUG USE FOR UNKNOWN INDICATION
     Route: 048
  12. ISOPTIN [Suspect]
     Indication: DRUG USE FOR UNKNOWN INDICATION
     Route: 048
  13. PROSCAR [Suspect]
     Indication: DRUG USE FOR UNKNOWN INDICATION
     Route: 048
  14. BRICANYL [Suspect]
     Indication: DRUG USE FOR UNKNOWN INDICATION
     Route: 055
  15. TARDYFERON [Suspect]
     Indication: DRUG USE FOR UNKNOWN INDICATION
     Route: 048

REACTIONS (3)
  - ENCEPHALOPATHY [None]
  - HYPERCAPNIA [None]
  - METABOLIC ALKALOSIS [None]
